FAERS Safety Report 19331997 (Version 7)
Quarter: 2021Q4

REPORT INFORMATION
  Report Type: Report from Study
  Country: US (occurrence: US)
  Receive Date: 20210528
  Receipt Date: 20211113
  Transmission Date: 20220303
  Serious: Yes (Life-Threatening, Hospitalization, Other)
  Sender: FDA-Public Use
  Company Number: NVSC2021US120689

PATIENT
  Age: 38 Year
  Sex: Male

DRUGS (2)
  1. ENTRESTO [Suspect]
     Active Substance: SACUBITRIL\VALSARTAN
     Indication: Product used for unknown indication
     Dosage: 1 DF (24/26 MG), BID
     Route: 048
     Dates: start: 20190101
  2. ENTRESTO [Suspect]
     Active Substance: SACUBITRIL\VALSARTAN
     Dosage: 1 DF(97/103 MG), BID
     Route: 048

REACTIONS (7)
  - Respiratory arrest [Unknown]
  - Carbon dioxide increased [Unknown]
  - Ejection fraction decreased [Unknown]
  - Malaise [Unknown]
  - Cardiac disorder [Unknown]
  - Dyspnoea [Unknown]
  - Fatigue [Recovering/Resolving]

NARRATIVE: CASE EVENT DATE: 20190101
